FAERS Safety Report 10196918 (Version 1)
Quarter: 2014Q2

REPORT INFORMATION
  Report Type: Spontaneous
  Country: IN (occurrence: IN)
  Receive Date: 20140527
  Receipt Date: 20140527
  Transmission Date: 20141212
  Serious: Yes (Other)
  Sender: FDA-Public Use
  Company Number: IN-SA-2014SA068980

PATIENT
  Sex: Female

DRUGS (3)
  1. RIFAMPICIN [Suspect]
     Indication: TUBERCULOSIS
     Route: 065
  2. ISONIAZID [Suspect]
     Indication: TUBERCULOSIS
     Route: 065
  3. PYRAZINAMIDE [Suspect]
     Indication: TUBERCULOSIS
     Route: 065

REACTIONS (1)
  - Drug-induced liver injury [Recovering/Resolving]
